FAERS Safety Report 20147081 (Version 1)
Quarter: 2021Q4

REPORT INFORMATION
  Report Type: Spontaneous
  Country: US (occurrence: US)
  Receive Date: 20211203
  Receipt Date: 20211203
  Transmission Date: 20220303
  Serious: No
  Sender: FDA-Public Use
  Company Number: US-SA-SAC20211125000691

PATIENT
  Sex: Male

DRUGS (5)
  1. DUPIXENT [Suspect]
     Active Substance: DUPILUMAB
     Indication: Dermatitis atopic
     Dosage: 300 MG, QOW
     Route: 058
     Dates: start: 202011
  2. TRIAMCINOLONE ACETONIDE [Concomitant]
     Active Substance: TRIAMCINOLONE ACETONIDE
     Indication: Dermatitis atopic
  3. BROMPHENIRAMINE MALEATE;PSEUDOEPHEDRINE [Concomitant]
  4. MUPIROCIN [Concomitant]
     Active Substance: MUPIROCIN
  5. PROBIOTIC 10 [BIFIDOBACTERIUM BIFIDUM;BIFIDOBACTERIUM LACTIS;LACTOBACI [Concomitant]

REACTIONS (7)
  - Pruritus [Unknown]
  - Rash macular [Unknown]
  - Dermatitis [Unknown]
  - Skin fissures [Unknown]
  - Dry skin [Unknown]
  - Dermatitis atopic [Unknown]
  - Therapeutic response decreased [Unknown]
